FAERS Safety Report 25699615 (Version 1)
Quarter: 2025Q3

REPORT INFORMATION
  Report Type: Spontaneous
  Country: VN (occurrence: VN)
  Receive Date: 20250819
  Receipt Date: 20250819
  Transmission Date: 20251021
  Serious: Yes (Life-Threatening, Hospitalization, Other)
  Sender: UNICHEM
  Company Number: VN-UNICHEM LABORATORIES LIMITED-UNI-2025-VN-003068

PATIENT

DRUGS (2)
  1. AMLODIPINE [Suspect]
     Active Substance: AMLODIPINE BESYLATE
     Indication: Hypertension
     Route: 065
  2. ATENOLOL [Suspect]
     Active Substance: ATENOLOL
     Indication: Hypertension
     Route: 065

REACTIONS (7)
  - Overdose [Unknown]
  - Toxicity to various agents [Unknown]
  - Metabolic acidosis [Recovering/Resolving]
  - Pulmonary oedema [Recovering/Resolving]
  - Cardiogenic shock [Recovering/Resolving]
  - Sinus bradycardia [Recovering/Resolving]
  - Acute kidney injury [Recovering/Resolving]
